FAERS Safety Report 6407771-3 (Version None)
Quarter: 2009Q4

REPORT INFORMATION
  Report Type: 
  Country: None (occurrence: None)
  Receive Date: 20091015
  Receipt Date: 20091001
  Transmission Date: 20100525
  Serious: Yes (Other)
  Sender: FDA-Public Use
  Company Number: GB-DEXPHARM-20091584

PATIENT
  Age: 62 Year
  Sex: Female

DRUGS (3)
  1. OMEPRAZOLE [Suspect]
     Dosage: DOSE: 40 MG MILLIGRAM(S) ORAL
     Route: 048
     Dates: start: 20080201, end: 20090717
  2. EVOREL [Concomitant]
  3. RAMIPRIL [Concomitant]

REACTIONS (3)
  - DYSPNOEA [None]
  - RENAL FAILURE CHRONIC [None]
  - TUBULOINTERSTITIAL NEPHRITIS [None]
